FAERS Safety Report 9838883 (Version 2)
Quarter: 2014Q2

REPORT INFORMATION
  Report Type: Spontaneous
  Country: IT (occurrence: IT)
  Receive Date: 20140123
  Receipt Date: 20140414
  Transmission Date: 20141212
  Serious: Yes (Death)
  Sender: FDA-Public Use
  Company Number: IT-CELGENEUS-083-21880-14012099

PATIENT
  Age: 87 Year
  Sex: 0

DRUGS (3)
  1. REVLIMID [Suspect]
     Indication: DIFFUSE LARGE B-CELL LYMPHOMA
     Dosage: 25 MILLIGRAM
     Route: 048
     Dates: start: 20130622, end: 20130717
  2. LANOXIN [Concomitant]
     Indication: ARRHYTHMIA
     Route: 065
  3. CONGESCOR [Concomitant]
     Indication: ARRHYTHMIA
     Route: 065

REACTIONS (1)
  - Diffuse large B-cell lymphoma [Fatal]
